FAERS Safety Report 4553116-3 (Version None)
Quarter: 2005Q1

REPORT INFORMATION
  Report Type: 
  Country: None (occurrence: None)
  Receive Date: 20050113
  Receipt Date: 20050104
  Transmission Date: 20050727
  Serious: Yes (Other)
  Sender: FDA-Public Use
  Company Number: HQWYE325909NOV04

PATIENT
  Age: 61 Year
  Sex: Male
  Weight: 90.7 kg

DRUGS (12)
  1. PROTONIX [Suspect]
     Indication: GASTROINTESTINAL HAEMORRHAGE
     Dosage: BOLUS  INTRAVENOUS; 40 MG/10 ML VIAL (80 MG) = 20 ML WITH 0.9% NS 100 ML BAG, INTRAVENOUS
     Route: 042
     Dates: start: 20041029, end: 20041029
  2. PROTONIX [Suspect]
     Indication: PEPTIC ULCER
     Dosage: BOLUS  INTRAVENOUS; 40 MG/10 ML VIAL (80 MG) = 20 ML WITH 0.9% NS 100 ML BAG, INTRAVENOUS
     Route: 042
     Dates: start: 20041029, end: 20041029
  3. PROTONIX [Suspect]
     Indication: GASTROINTESTINAL HAEMORRHAGE
     Dosage: BOLUS  INTRAVENOUS; 40 MG/10 ML VIAL (80 MG) = 20 ML WITH 0.9% NS 100 ML BAG, INTRAVENOUS
     Route: 042
     Dates: start: 20041029, end: 20041102
  4. PROTONIX [Suspect]
     Indication: PEPTIC ULCER
     Dosage: BOLUS  INTRAVENOUS; 40 MG/10 ML VIAL (80 MG) = 20 ML WITH 0.9% NS 100 ML BAG, INTRAVENOUS
     Route: 042
     Dates: start: 20041029, end: 20041102
  5. COREG [Concomitant]
  6. DIPYRIDAMOLE [Concomitant]
  7. SUCRALFATE (SCRALFATE) [Concomitant]
  8. PLASMA-LYTE (ELECTROLYTES NOS) [Concomitant]
  9. METOCLOPRAMIDE [Concomitant]
  10. MORPHINE SULFATE [Concomitant]
  11. NTG (GLYCERYL TRINITRATE) [Concomitant]
  12. LISINOPRIL [Concomitant]

REACTIONS (2)
  - INFUSION SITE REACTION [None]
  - PHLEBITIS [None]
